FAERS Safety Report 4928642-5 (Version None)
Quarter: 2006Q1

REPORT INFORMATION
  Report Type: 
  Country: None (occurrence: None)
  Receive Date: 20060227
  Receipt Date: 20060227
  Transmission Date: 20060701
  Serious: Yes (Other)
  Sender: FDA-Public Use
  Company Number: None

PATIENT
  Sex: Female
  Weight: 63.5036 kg

DRUGS (5)
  1. CYMBALTA [Suspect]
     Indication: DEPRESSION
     Dosage: 60MG   QD   PO
     Route: 048
     Dates: start: 20050401, end: 20060101
  2. TRAZODONE   50 [Suspect]
     Indication: DEPRESSION
     Dosage: 50MG   HS   PO
     Route: 048
     Dates: start: 20040401, end: 20050101
  3. ESTRACE [Concomitant]
  4. NAPROSYN [Concomitant]
  5. FIORICET [Concomitant]

REACTIONS (4)
  - BUNDLE BRANCH BLOCK RIGHT [None]
  - PALPITATIONS [None]
  - VENTRICULAR EXTRASYSTOLES [None]
  - VENTRICULAR TACHYCARDIA [None]
